FAERS Safety Report 8600832-X (Version None)
Quarter: 2012Q3

REPORT INFORMATION
  Report Type: 
  Country: None (occurrence: None)
  Receive Date: 20120817
  Receipt Date: 20120808
  Transmission Date: 20120928
  Serious: Yes (Other)
  Sender: FDA-Public Use
  Company Number: CO-SANOFI-AVENTIS-2012SA058785

PATIENT
  Age: 59 Year
  Sex: Female

DRUGS (6)
  1. NIMODIPINE [Concomitant]
     Route: 048
     Dates: start: 20120724
  2. ACETYLSALICYLIC ACID SRT [Concomitant]
     Indication: PROPHYLAXIS
     Route: 048
  3. ACETAMINOPHEN [Concomitant]
     Indication: MIGRAINE
     Route: 048
  4. PLAVIX [Suspect]
     Indication: PROPHYLAXIS
     Route: 048
     Dates: start: 20120724
  5. RANITIDINE [Concomitant]
     Indication: PROPHYLAXIS
     Route: 048
     Dates: start: 20120724
  6. LOSARTAN POTASSIUM [Concomitant]
     Indication: HYPERTENSION
     Route: 048

REACTIONS (3)
  - RESPIRATORY DISTRESS [None]
  - DYSAESTHESIA [None]
  - CHEST PAIN [None]
